FAERS Safety Report 13662861 (Version 1)
Quarter: 2017Q2

REPORT INFORMATION
  Report Type: Spontaneous
  Country: JP (occurrence: JP)
  Receive Date: 20170619
  Receipt Date: 20170619
  Transmission Date: 20170830
  Serious: Yes (Hospitalization, Other)
  Sender: FDA-Public Use
  Company Number: JP-ROCHE-1931242

PATIENT
  Age: 58 Year
  Sex: Female

DRUGS (3)
  1. CARBOPLATIN. [Concomitant]
     Active Substance: CARBOPLATIN
     Indication: CERVIX CARCINOMA
     Dosage: DOSAGE IS UNCERTAIN
     Route: 041
  2. AVASTIN [Suspect]
     Active Substance: BEVACIZUMAB
     Indication: CERVIX CARCINOMA
     Route: 041
     Dates: start: 20170131, end: 201704
  3. PACLITAXEL. [Concomitant]
     Active Substance: PACLITAXEL
     Indication: CERVIX CARCINOMA
     Dosage: DOSAGE IS UNCERTAIN
     Route: 041

REACTIONS (3)
  - Tumour necrosis [Unknown]
  - Device related infection [Unknown]
  - Gastrointestinal perforation [Recovered/Resolved]

NARRATIVE: CASE EVENT DATE: 20170221
